FAERS Safety Report 7298731-1 (Version None)
Quarter: 2011Q1

REPORT INFORMATION
  Report Type: 
  Country: None (occurrence: None)
  Receive Date: 20110217
  Receipt Date: 20110211
  Transmission Date: 20110831
  Serious: Yes (Hospitalization)
  Sender: FDA-Public Use
  Company Number: US-JNJFOC-20110203747

PATIENT
  Sex: Male
  Weight: 68.04 kg

DRUGS (4)
  1. UNKNOWN MEDICATION [Concomitant]
     Indication: BLOOD CHOLESTEROL INCREASED
     Route: 048
  2. DURAGESIC-50 [Suspect]
     Indication: PAIN IN EXTREMITY
     Route: 062
  3. DURAGESIC-50 [Suspect]
     Dosage: NDC 50458-0092-05
     Route: 062
  4. UNKNOWN MEDICATION [Concomitant]
     Indication: HYPERTENSION
     Route: 048

REACTIONS (17)
  - CORONARY ARTERY OCCLUSION [None]
  - PULSE ABSENT [None]
  - PRODUCT ADHESION ISSUE [None]
  - CARDIOMEGALY [None]
  - ARTERIAL OCCLUSIVE DISEASE [None]
  - HYPOAESTHESIA [None]
  - FEELING COLD [None]
  - MALAISE [None]
  - POOR PERIPHERAL CIRCULATION [None]
  - THERAPEUTIC RESPONSE DECREASED [None]
  - APPLICATION SITE ERYTHEMA [None]
  - APPLICATION SITE DISCOLOURATION [None]
  - WRONG TECHNIQUE IN DRUG USAGE PROCESS [None]
  - BEDRIDDEN [None]
  - DRUG INEFFECTIVE [None]
  - MOVEMENT DISORDER [None]
  - DRUG DOSE OMISSION [None]
